FAERS Safety Report 5587374-3 (Version None)
Quarter: 2007Q4

REPORT INFORMATION
  Report Type: 
  Country: None (occurrence: None)
  Receive Date: 20071205
  Receipt Date: 20070306
  Transmission Date: 20080405
  Serious: Yes (Other)
  Sender: FDA-Public Use
  Company Number: HQWYE006107MAR07

PATIENT
  Age: 55 Year
  Sex: Male

DRUGS (3)
  1. EFFEXOR XR [Suspect]
     Indication: BIPOLAR DISORDER
     Dosage: ^TAPERED OFF THE PRODUCT^, ORAL ; 150 MG 1X PER 1 DAY, ORAL
     Route: 048
     Dates: start: 20070207, end: 20070210
  2. EFFEXOR XR [Suspect]
     Indication: BIPOLAR DISORDER
     Dosage: ^TAPERED OFF THE PRODUCT^, ORAL ; 150 MG 1X PER 1 DAY, ORAL
     Route: 048
     Dates: start: 20070211, end: 20070222
  3. OMEPRAZOLE [Concomitant]

REACTIONS (4)
  - BLOOD PRESSURE INCREASED [None]
  - DRUG WITHDRAWAL SYNDROME [None]
  - HEART RATE INCREASED [None]
  - NERVOUSNESS [None]
